FAERS Safety Report 11217607 (Version 1)
Quarter: 2015Q2

REPORT INFORMATION
  Report Type: Report from Study
  Country: PA (occurrence: PA)
  Receive Date: 20150625
  Receipt Date: 20150625
  Transmission Date: 20150821
  Serious: Yes (Hospitalization)
  Sender: FDA-Public Use
  Company Number: PHHY2015PA058879

PATIENT
  Age: 85 Year
  Sex: Male

DRUGS (1)
  1. EXJADE [Suspect]
     Active Substance: DEFERASIROX
     Indication: SERUM FERRITIN INCREASED
     Dosage: UNK
     Route: 065
     Dates: end: 20150511

REACTIONS (8)
  - Depressed mood [Unknown]
  - Platelet count decreased [Unknown]
  - Crying [Unknown]
  - Blood iron decreased [Unknown]
  - Haemoglobin abnormal [Unknown]
  - Decreased appetite [Unknown]
  - Urinary tract infection [Unknown]
  - Platelet count abnormal [Unknown]
